FAERS Safety Report 8906977 (Version 1)
Quarter: 2012Q4

REPORT INFORMATION
  Report Type: Report from Study
  Country: JP (occurrence: JP)
  Receive Date: 20121114
  Receipt Date: 20121114
  Transmission Date: 20130627
  Serious: Yes (Other)
  Sender: FDA-Public Use
  Company Number: JP-VERTEX PHARMACEUTICAL INC.-AE-2012-008915

PATIENT
  Age: 60 Year
  Sex: Male

DRUGS (13)
  1. VX-950 (TELAPREVIR) [Suspect]
     Indication: CHRONIC HEPATITIS C
     Dosage: 2250 mg, qd
     Route: 048
     Dates: start: 20120414, end: 20120514
  2. VX-950 (TELAPREVIR) [Suspect]
     Dosage: 1500 mg, qd
     Route: 048
     Dates: start: 20120515, end: 20120518
  3. REBETOL [Suspect]
     Indication: CHRONIC HEPATITIS C
     Dosage: 600 mg, qd
     Route: 048
     Dates: start: 20120413, end: 20120510
  4. REBETOL [Suspect]
     Dosage: 200 mg, qd
     Route: 048
     Dates: start: 20120511, end: 20120518
  5. PEGINTRON                          /01543001/ [Suspect]
     Indication: CHRONIC HEPATITIS C
     Dosage: 1.5 ?g/kg, qw
     Route: 058
     Dates: start: 20120413, end: 20120504
  6. PEGINTRON                          /01543001/ [Suspect]
     Dosage: 0.75 ?g/kg, qw
     Route: 048
     Dates: start: 20120511, end: 20120518
  7. EQUA [Concomitant]
     Dosage: 100 mg, qd
     Route: 048
  8. URDENACIN [Concomitant]
     Dosage: 300 mg, qd
     Route: 048
  9. REZALTAS [Concomitant]
     Dosage: 1 DF, qd
     Route: 048
  10. LENDORMIN [Concomitant]
     Dosage: 0.25 mg, qd
     Route: 048
  11. EPADEL                             /01682401/ [Concomitant]
     Dosage: 1800 mg, qd
     Route: 048
  12. PARIET [Concomitant]
     Dosage: 10 mg, qd
     Route: 048
  13. HARNAL [Concomitant]
     Dosage: 0.2 mg, qd
     Route: 048

REACTIONS (4)
  - Blood urea increased [Recovered/Resolved]
  - Blood creatinine increased [Recovered/Resolved]
  - Blood uric acid increased [Recovered/Resolved]
  - Haemoglobin decreased [Recovered/Resolved]
